FAERS Safety Report 7553278-X (Version None)
Quarter: 2011Q2

REPORT INFORMATION
  Report Type: 
  Country: None (occurrence: None)
  Receive Date: 20110617
  Receipt Date: 20110607
  Transmission Date: 20111010
  Serious: No
  Sender: FDA-Public Use
  Company Number: US-BIOGENIDEC-2011BI021246

PATIENT
  Age: 40 Year
  Sex: Female

DRUGS (2)
  1. NUVIGIL [Concomitant]
  2. TYSABRI [Suspect]
     Indication: MULTIPLE SCLEROSIS
     Route: 042
     Dates: start: 20080804

REACTIONS (5)
  - HORMONE LEVEL ABNORMAL [None]
  - HOT FLUSH [None]
  - MOBILITY DECREASED [None]
  - FATIGUE [None]
  - HEADACHE [None]
